FAERS Safety Report 21797276 (Version 8)
Quarter: 2023Q2

REPORT INFORMATION
  Report Type: Spontaneous
  Country: JP (occurrence: JP)
  Receive Date: 20221230
  Receipt Date: 20230626
  Transmission Date: 20230721
  Serious: Yes (Death, Other)
  Sender: FDA-Public Use
  Company Number: JP-ASTELLAS-2022JP016394

PATIENT
  Age: 67 Year
  Sex: Male

DRUGS (25)
  1. PADCEV [Suspect]
     Active Substance: ENFORTUMAB VEDOTIN-EJFV
     Indication: Ureteric cancer metastatic
     Dosage: 1 MG/KG, DRUG WAS ADMINISTERED ON WEEK 1, 2, 3 AND REST ON WEEK 4
     Route: 041
     Dates: start: 20220927, end: 20221011
  2. PADCEV [Suspect]
     Active Substance: ENFORTUMAB VEDOTIN-EJFV
     Route: 041
     Dates: start: 20221101, end: 20221115
  3. PADCEV [Suspect]
     Active Substance: ENFORTUMAB VEDOTIN-EJFV
     Route: 041
     Dates: start: 20221129, end: 20221213
  4. PADCEV [Suspect]
     Active Substance: ENFORTUMAB VEDOTIN-EJFV
     Dosage: 1.0 MG/KG, UNKNOWN FREQ.
     Route: 041
     Dates: start: 20230117, end: 20230131
  5. PADCEV [Suspect]
     Active Substance: ENFORTUMAB VEDOTIN-EJFV
     Dosage: 1.0 MG/KG, DRUG WAS ADMINISTERED ON WEEK 1, 2, 3 AND REST ON WEEK 4
     Route: 041
     Dates: start: 20230307, end: 20230321
  6. LINZESS [Concomitant]
     Active Substance: LINACLOTIDE
     Indication: Product used for unknown indication
     Dosage: 0.5 MG, ONCE DAILY, BEFORE DINNER
     Route: 065
  7. PREDONINE [Concomitant]
     Active Substance: PREDNISOLONE
     Indication: Product used for unknown indication
     Dosage: 5 MG, ONCE DAILY, AFTER BREAKFAST, FOR 8 DAYS
     Route: 065
  8. LANSOPRAZOLE [Concomitant]
     Active Substance: LANSOPRAZOLE
     Indication: Product used for unknown indication
     Dosage: 15 MG, ONCE DAILY, AFTER BREAKFAST, FOR 6 DAYS
     Route: 065
  9. DAYVIGO [Concomitant]
     Active Substance: LEMBOREXANT
     Indication: Product used for unknown indication
     Dosage: 5 MG, ONCE DAILY, BEFORE GOING TO BED, FOR 21 DAYS
     Route: 065
  10. SYMPROIC [Concomitant]
     Active Substance: NALDEMEDINE
     Indication: Product used for unknown indication
     Dosage: 0.2 MG, ONCE DAILY, AFTER DINNER, FOR 11 DAYS
     Route: 065
  11. CALONAL [Concomitant]
     Active Substance: ACETAMINOPHEN
     Indication: Product used for unknown indication
     Dosage: 500, UNK, THRICE DAILY, AFTER BREAKFAST,LUNCH AND DINNER, FOR 6 DAYS
     Route: 065
  12. TAPENTADOL HYDROCHLORIDE [Concomitant]
     Active Substance: TAPENTADOL HYDROCHLORIDE
     Indication: Product used for unknown indication
     Dosage: 25 MG, EVERY 12 HOURS, FOR 5 DAYS
     Route: 065
  13. Oxinorm [Concomitant]
     Indication: Product used for unknown indication
     Dosage: 2.5 MG, AS NEEDED (AT THE TIME OF PAIN)
     Route: 065
  14. MIROGABALIN BESYLATE [Concomitant]
     Active Substance: MIROGABALIN BESYLATE
     Indication: Product used for unknown indication
     Dosage: 5 MG, TWICE DAILY, AFTER BREAKFAST AND DINNER, FOR 6 DAYS
     Route: 065
  15. AMLODIPINE [Concomitant]
     Active Substance: AMLODIPINE BESYLATE
     Indication: Hypertension
     Dosage: 5 MG, ONCE DAILY, AFTER BREAKFAST, FOR 6 DAYS
     Route: 065
  16. FEBUXOSTAT [Concomitant]
     Active Substance: FEBUXOSTAT
     Indication: Hyperuricaemia
     Dosage: 20 MG, ONCE DAILY, AFTER BREAKFAST, FOR 6 DAYS
     Route: 065
  17. OLOPATADINE HYDROCHLORIDE [Concomitant]
     Active Substance: OLOPATADINE HYDROCHLORIDE
     Indication: Dermatitis allergic
     Dosage: 5 MG, ONCE DAILY, AFTER BREAKFAST, FOR 6 DAYS
     Route: 065
  18. AMLODIPINE BESYLATE\ATORVASTATIN CALCIUM [Concomitant]
     Active Substance: AMLODIPINE BESYLATE\ATORVASTATIN CALCIUM
     Indication: Diabetes mellitus
     Dosage: UNK UNK, ONCE DAILY, AFTER BREAKFAST
     Route: 065
  19. MIROGABALIN BESYLATE [Concomitant]
     Active Substance: MIROGABALIN BESYLATE
     Indication: Neuropathy peripheral
     Dosage: UNK UNK, UNKNOWN FREQ.
     Route: 048
     Dates: start: 20230110
  20. INSULIN NOS [Concomitant]
     Active Substance: INSULIN NOS
     Indication: Hyperglycaemia
     Dosage: UNK UNK, UNKNOWN FREQ.
     Route: 065
  21. ISOTONIC SODIUM CHLORIDE SOLUTION [Concomitant]
     Active Substance: SODIUM CHLORIDE
     Indication: Medication dilution
     Dosage: 70 ML, DRUG WAS ADMINISTERED ON WEEK 1, 2, 3 AND REST ON WEEK 4 (30 MINUTES)
     Route: 041
     Dates: start: 20220927
  22. ISOTONIC SODIUM CHLORIDE SOLUTION [Concomitant]
     Active Substance: SODIUM CHLORIDE
     Dosage: 70 ML, UNKNOWN FREQ (30 MINUTES)
     Route: 041
     Dates: start: 20221101, end: 20221115
  23. ISOTONIC SODIUM CHLORIDE SOLUTION [Concomitant]
     Active Substance: SODIUM CHLORIDE
     Dosage: 70 ML, UNKNOWN FREQ (30 MINUTES)
     Route: 041
     Dates: start: 20221129, end: 20221213
  24. ISOTONIC SODIUM CHLORIDE SOLUTION [Concomitant]
     Active Substance: SODIUM CHLORIDE
     Dosage: 70 ML, UNKNOWN FREQ (30 MINUTES)
     Route: 041
     Dates: start: 20230116
  25. ISOTONIC SODIUM CHLORIDE SOLUTION [Concomitant]
     Active Substance: SODIUM CHLORIDE
     Dosage: 70 ML, UNKNOWN FREQ (30 MINUTES)
     Route: 041
     Dates: start: 20230307

REACTIONS (13)
  - Hyperglycaemia [Recovering/Resolving]
  - Neuropathy peripheral [Not Recovered/Not Resolved]
  - Pneumonia aspiration [Fatal]
  - Somnolence [Unknown]
  - Alopecia [Not Recovered/Not Resolved]
  - Weight decreased [Unknown]
  - Dry eye [Unknown]
  - Dysgeusia [Not Recovered/Not Resolved]
  - Pruritus [Recovering/Resolving]
  - Hepatic function abnormal [Not Recovered/Not Resolved]
  - Decreased appetite [Not Recovered/Not Resolved]
  - Fatigue [Not Recovered/Not Resolved]
  - Inappropriate schedule of product administration [Unknown]

NARRATIVE: CASE EVENT DATE: 20221003
